FAERS Safety Report 20430632 (Version 1)
Quarter: 2022Q1

REPORT INFORMATION
  Report Type: Report from Study
  Country: FR (occurrence: FR)
  Receive Date: 20220204
  Receipt Date: 20220204
  Transmission Date: 20220424
  Serious: Yes (Hospitalization)
  Sender: FDA-Public Use
  Company Number: FR-SERVIER-S20012933

PATIENT

DRUGS (9)
  1. PEGASPARGASE [Suspect]
     Active Substance: PEGASPARGASE
     Indication: Acute lymphocytic leukaemia
     Dosage: 925 IU, QD, ON D8
     Route: 042
     Dates: start: 20201203, end: 20201203
  2. VINCRISTINE [Suspect]
     Active Substance: VINCRISTINE
     Indication: Acute lymphocytic leukaemia
     Dosage: 1.1 MG, D1, D2, D8
     Route: 042
     Dates: start: 20201126, end: 20210109
  3. DEXAMETHASONE [Suspect]
     Active Substance: DEXAMETHASONE
     Indication: Acute lymphocytic leukaemia
     Dosage: 4.5 MG, D1-D5
     Route: 048
     Dates: start: 20201126, end: 20201130
  4. TN UNSPECIFIED [Concomitant]
     Indication: Acute lymphocytic leukaemia
     Dosage: 36 MG, D1-D21, D29-D42
     Route: 048
     Dates: start: 20201126, end: 20210111
  5. TN UNSPECIFIED [Concomitant]
     Indication: Acute lymphocytic leukaemia
     Dosage: 20 MG, D8, D15, D22
     Route: 048
     Dates: start: 20201203, end: 20201217
  6. TN UNSPECIFIED [Concomitant]
     Dosage: 12 MG, D2, D30
     Route: 037
     Dates: start: 20201127, end: 20201229
  7. TN UNSPECIFIED [Concomitant]
     Indication: Acute lymphocytic leukaemia
     Dosage: 59.25 MG, D31-D34, D38-D41
     Route: 042
     Dates: start: 20201220, end: 20210110
  8. TN UNSPECIFIED [Concomitant]
     Dosage: 30 MG, D31
     Route: 037
     Dates: start: 20201230, end: 20201230
  9. TN UNSPECIFIED [Concomitant]
     Indication: Acute lymphocytic leukaemia
     Dosage: 790 MG, D29
     Route: 042
     Dates: start: 20201228, end: 20201228

REACTIONS (2)
  - Drug hypersensitivity [Recovered/Resolved]
  - Diabetic ketoacidosis [Not Recovered/Not Resolved]

NARRATIVE: CASE EVENT DATE: 20201203
